FAERS Safety Report 8121510-X (Version None)
Quarter: 2012Q1

REPORT INFORMATION
  Report Type: 
  Country: None (occurrence: None)
  Receive Date: 20120208
  Receipt Date: 20120203
  Transmission Date: 20120608
  Serious: No
  Sender: FDA-Public Use
  Company Number: US-PFIZER INC-2012030801

PATIENT
  Sex: Female
  Weight: 77.098 kg

DRUGS (3)
  1. LYRICA [Suspect]
     Indication: NERVE COMPRESSION
     Dosage: 150 MG, 2X/DAY
     Route: 048
     Dates: start: 20110101, end: 20120101
  2. LYRICA [Suspect]
     Indication: NEURALGIA
  3. KLONOPIN [Concomitant]
     Dosage: UNK, 1X/DAY

REACTIONS (2)
  - PAIN [None]
  - DRUG INEFFECTIVE [None]
